FAERS Safety Report 8428724-X (Version None)
Quarter: 2012Q2

REPORT INFORMATION
  Report Type: 
  Country: None (occurrence: None)
  Receive Date: 20120612
  Receipt Date: 20120528
  Transmission Date: 20120825
  Serious: Yes (Other)
  Sender: FDA-Public Use
  Company Number: BR-AMGEN-BRASP2012022422

PATIENT
  Age: 52 Year
  Sex: Female
  Weight: 84 kg

DRUGS (10)
  1. TORAGESIC [Concomitant]
     Dosage: WHEN FEELING PAIN
  2. PRELONE [Concomitant]
     Indication: PAIN
     Dosage: 5 MG, 2X/DAY
  3. NEXIUM [Concomitant]
     Indication: GASTRIC DISORDER
     Dosage: 20 MG, QD
  4. FLUOXETINE [Concomitant]
     Dosage: 20 MG, UNK
  5. TIBOLONE [Concomitant]
     Indication: HORMONE REPLACEMENT THERAPY
     Dosage: 1.25 MG, QD
  6. ENBREL [Suspect]
     Indication: RHEUMATOID ARTHRITIS
     Dosage: 50 MG, WEEKLY
     Route: 058
     Dates: start: 20120326
  7. PANTOPRAZOLE [Concomitant]
     Indication: GASTRIC DISORDER
     Dosage: 20 MG, UNK
  8. LANSOPRAZOLE [Concomitant]
     Indication: GASTRIC DISORDER
     Dosage: 30 MG, UNK
  9. PRELONE [Concomitant]
     Dosage: 7 MG, UNK
  10. METHOTREXATE [Concomitant]
     Indication: RHEUMATOID ARTHRITIS
     Dosage: 10 MG, WEEKLY

REACTIONS (12)
  - ABDOMINAL DISCOMFORT [None]
  - ABDOMINAL DISTENSION [None]
  - NAUSEA [None]
  - COUGH [None]
  - ABDOMINAL PAIN UPPER [None]
  - PAIN [None]
  - BLOOD PRESSURE INCREASED [None]
  - HEADACHE [None]
  - EYE PAIN [None]
  - HYPERHIDROSIS [None]
  - PYREXIA [None]
  - DENGUE FEVER [None]
